FAERS Safety Report 21646761 (Version 1)
Quarter: 2022Q4

REPORT INFORMATION
  Report Type: Spontaneous
  Country: NL (occurrence: NL)
  Receive Date: 20221127
  Receipt Date: 20221127
  Transmission Date: 20230113
  Serious: Yes (Hospitalization)
  Sender: FDA-Public Use
  Company Number: None

PATIENT
  Sex: Female
  Weight: 70 kg

DRUGS (4)
  1. CITALOPRAM [Suspect]
     Active Substance: CITALOPRAM HYDROBROMIDE
     Indication: Depression
     Dosage: BRAND NAME NOT SPECIFIED , FORM STRENGTH : 10 MG , UNIT DOSE : 1 DF , FREQUENCY TIME : 1 DAY ,  THER
     Dates: start: 20221025
  2. CITALOPRAM [Suspect]
     Active Substance: CITALOPRAM HYDROBROMIDE
     Indication: Generalised anxiety disorder
     Dosage: 1 DD 1.5 PIECES , BRAND NAME NOT SPECIFIED , FORM STRENGTH : 10 MG
     Dates: start: 20221031, end: 20221103
  3. HYDROCHLOROTHIAZIDE\IRBESARTAN [Suspect]
     Active Substance: HYDROCHLOROTHIAZIDE\IRBESARTAN
     Indication: Hypertension
     Dosage: 1 DOSAGE FORMS DAILY; 1 DD 1 , 300/25MG / BRAND NAME NOT SPECIFIED
     Dates: start: 20220101, end: 20221103
  4. SODIUM CHLORIDE [Concomitant]
     Active Substance: SODIUM CHLORIDE
     Indication: Product used for unknown indication
     Dosage: BRAND NAME NOT SPECIFIED THERAPY START DATE AND END DATE : ASKU

REACTIONS (2)
  - Hyponatraemia [Recovering/Resolving]
  - Confusional state [Recovering/Resolving]
